FAERS Safety Report 9702898 (Version 1)
Quarter: 2013Q4

REPORT INFORMATION
  Report Type: Spontaneous
  Country: US (occurrence: US)
  Receive Date: 20131121
  Receipt Date: 20131121
  Transmission Date: 20140711
  Serious: No
  Sender: FDA-Public Use
  Company Number: US-GILEAD-2013-0085245

PATIENT
  Age: 50 Year
  Sex: Female

DRUGS (4)
  1. ATRIPLA [Suspect]
     Indication: HIV INFECTION
     Route: 048
  2. ISENTRESS [Suspect]
     Indication: HIV INFECTION
     Dosage: 400 MG, BID
     Route: 048
     Dates: start: 20120923
  3. SYNTHROID [Suspect]
     Indication: PRODUCT USED FOR UNKNOWN INDICATION
  4. LIPITOR [Suspect]
     Indication: PRODUCT USED FOR UNKNOWN INDICATION

REACTIONS (2)
  - Swollen tongue [Not Recovered/Not Resolved]
  - Dizziness [Not Recovered/Not Resolved]
